FAERS Safety Report 24195168 (Version 1)
Quarter: 2024Q3

REPORT INFORMATION
  Report Type: Spontaneous
  Country: US (occurrence: None)
  Receive Date: 20240809
  Receipt Date: 20240809
  Transmission Date: 20241017
  Serious: Yes (Hospitalization)
  Sender: Public
  Company Number: None

PATIENT
  Age: 83 Year
  Sex: Male
  Weight: 51.9 kg

DRUGS (2)
  1. DARATUMUMAB\HYALURONIDASE-FIHJ [Suspect]
     Active Substance: DARATUMUMAB\HYALURONIDASE-FIHJ
     Dates: end: 20240717
  2. LENALIDOMIDE [Suspect]
     Active Substance: LENALIDOMIDE
     Dates: end: 20240727

REACTIONS (15)
  - Fatigue [None]
  - Orthostatic hypotension [None]
  - Fall [None]
  - Metabolic encephalopathy [None]
  - Dehydration [None]
  - Acute kidney injury [None]
  - Urinary tract infection [None]
  - Sepsis [None]
  - Blood albumin decreased [None]
  - Malnutrition [None]
  - Hypophagia [None]
  - Pulmonary oedema [None]
  - Hypomagnesaemia [None]
  - Hypokalaemia [None]
  - Cytopenia [None]

NARRATIVE: CASE EVENT DATE: 20240727
